FAERS Safety Report 7342809-0 (Version None)
Quarter: 2011Q1

REPORT INFORMATION
  Report Type: 
  Country: None (occurrence: None)
  Receive Date: 20110310
  Receipt Date: 20101203
  Transmission Date: 20110831
  Serious: Yes (Hospitalization, Other)
  Sender: FDA-Public Use
  Company Number: US-BAYER-200938763NA

PATIENT
  Sex: Male
  Weight: 91.61 kg

DRUGS (9)
  1. SIMVASTATIN [Concomitant]
     Dosage: 40 MG DAILY
     Dates: start: 20041101
  2. COMBIVENT [Concomitant]
     Dosage: 1-2 PUFFS EVERY 4 HRS AS NEEDED
  3. NEURONTIN [Concomitant]
     Dosage: 300 MG TWICE DAILY
  4. TRASYLOL [Suspect]
     Indication: MITRAL VALVE REPLACEMENT
     Dosage: UNK
     Route: 042
     Dates: start: 20070403, end: 20070403
  5. LASIX [Concomitant]
     Dosage: 40 MG TWICE DAILY
     Dates: start: 20031101
  6. MAG-OX [Concomitant]
     Dosage: 400 MG DAILY
  7. ENALAPRIL MALEATE [Concomitant]
     Dosage: 10 MG TWICE DAILY
  8. GABAPENTIN [Concomitant]
     Dosage: 300 MG TWICE DAILY
  9. VASOTEC [Concomitant]
     Dosage: 10 MG DAILY
     Dates: start: 20030101

REACTIONS (12)
  - RENAL FAILURE [None]
  - RENAL IMPAIRMENT [None]
  - ANXIETY [None]
  - PAIN [None]
  - EMOTIONAL DISTRESS [None]
  - UNEVALUABLE EVENT [None]
  - ANHEDONIA [None]
  - INJURY [None]
  - RENAL INJURY [None]
  - STRESS [None]
  - MOBILITY DECREASED [None]
  - FEAR [None]
